FAERS Safety Report 5332176-6 (Version None)
Quarter: 2007Q2

REPORT INFORMATION
  Report Type: 
  Country: None (occurrence: None)
  Receive Date: 20070518
  Receipt Date: 20070507
  Transmission Date: 20071010
  Serious: Yes (Hospitalization)
  Sender: FDA-Public Use
  Company Number: 233674K07USA

PATIENT
  Age: 49 Year
  Sex: Male
  Weight: 127.0072 kg

DRUGS (5)
  1. REBIF [Suspect]
     Indication: MULTIPLE SCLEROSIS
     Dosage: 44 MCG, 3 IN 1 WEEKS, SUBCUTANEOUS
     Route: 058
     Dates: start: 20061211, end: 20070507
  2. TRAMADOL HCL [Concomitant]
  3. CELEBREX [Concomitant]
  4. FEXOFENADINE HCL [Concomitant]
  5. ZOCOR [Concomitant]

REACTIONS (2)
  - CORONARY ARTERY STENOSIS [None]
  - FATIGUE [None]
